FAERS Safety Report 7396020-8 (Version None)
Quarter: 2011Q2

REPORT INFORMATION
  Report Type: 
  Country: None (occurrence: None)
  Receive Date: 20110406
  Receipt Date: 20110328
  Transmission Date: 20111010
  Serious: Yes (Other)
  Sender: FDA-Public Use
  Company Number: US-ELI_LILLY_AND_COMPANY-US201104000154

PATIENT
  Age: 21 Year
  Sex: Female

DRUGS (2)
  1. HUMALOG [Suspect]
     Indication: DIABETES MELLITUS
     Dosage: UNK UNK, BID
     Dates: start: 19940101
  2. HUMALOG [Suspect]
     Dosage: UNK, BID
     Dates: start: 19940101

REACTIONS (1)
  - RETINAL HAEMORRHAGE [None]
